FAERS Safety Report 5558518-4 (Version None)
Quarter: 2007Q4

REPORT INFORMATION
  Report Type: 
  Country: None (occurrence: None)
  Receive Date: 20071214
  Receipt Date: 20070904
  Transmission Date: 20080405
  Serious: No
  Sender: FDA-Public Use
  Company Number: US-ABBOTT-07P-163-0416197-00

PATIENT
  Sex: Female

DRUGS (2)
  1. HUMIRA [Suspect]
     Indication: DRUG USE FOR UNKNOWN INDICATION
     Route: 058
     Dates: start: 20051116, end: 20070904
  2. PREGABALIN [Concomitant]
     Indication: HERNIA

REACTIONS (3)
  - ASTHMA [None]
  - HERNIA [None]
  - OEDEMA PERIPHERAL [None]
